FAERS Safety Report 13336699 (Version 1)
Quarter: 2017Q1

REPORT INFORMATION
  Report Type: Spontaneous
  Country: US (occurrence: US)
  Receive Date: 20170314
  Receipt Date: 20170314
  Transmission Date: 20170428
  Serious: No
  Sender: FDA-Public Use
  Company Number: None

PATIENT
  Age: 62 Year
  Sex: Female

DRUGS (1)
  1. HARVONI [Suspect]
     Active Substance: LEDIPASVIR\SOFOSBUVIR
     Indication: HEPATITIS C

REACTIONS (8)
  - Fatigue [None]
  - Nausea [None]
  - Depression [None]
  - Oral mucosal blistering [None]
  - Dizziness [None]
  - Headache [None]
  - Insomnia [None]
  - Lip dry [None]

NARRATIVE: CASE EVENT DATE: 20170223
